FAERS Safety Report 9296813 (Version 8)
Quarter: 2015Q1

REPORT INFORMATION
  Report Type: Spontaneous
  Country: US (occurrence: US)
  Receive Date: 20130517
  Receipt Date: 20150210
  Transmission Date: 20150721
  Serious: Yes (Other)
  Sender: FDA-Public Use
  Company Number: US-009507513-1305USA010624

PATIENT
  Sex: Male
  Weight: 102.95 kg

DRUGS (8)
  1. PROSCAR [Suspect]
     Active Substance: FINASTERIDE
     Indication: BENIGN PROSTATIC HYPERPLASIA
     Dosage: 5 MG, QD
     Route: 048
     Dates: start: 2007, end: 2008
  2. FINASTERIDE. [Suspect]
     Active Substance: FINASTERIDE
     Indication: PRODUCT USED FOR UNKNOWN INDICATION
     Dosage: 5 MG, QD
     Route: 048
     Dates: start: 2006, end: 2008
  3. AMBIEN [Concomitant]
     Active Substance: ZOLPIDEM TARTRATE
     Indication: PRODUCT USED FOR UNKNOWN INDICATION
     Dosage: UNK
     Dates: start: 2003
  4. ASPIRIN. [Concomitant]
     Active Substance: ASPIRIN
     Indication: ARTERIOSCLEROSIS CORONARY ARTERY
     Dosage: 81-325 MG, QD
     Dates: start: 2000, end: 2007
  5. RAMIPRIL. [Concomitant]
     Active Substance: RAMIPRIL
     Indication: ARTERIOSCLEROSIS CORONARY ARTERY
     Dosage: 25 MG, UNK
     Dates: start: 2000, end: 2007
  6. PROSCAR [Suspect]
     Active Substance: FINASTERIDE
     Indication: PROSTATOMEGALY
  7. ATENOLOL. [Concomitant]
     Active Substance: ATENOLOL
     Indication: ARTERIOSCLEROSIS CORONARY ARTERY
     Dosage: 50 MG, UNK
     Dates: start: 2000, end: 2007
  8. NORVASC [Concomitant]
     Active Substance: AMLODIPINE BESYLATE
     Indication: ARTERIOSCLEROSIS CORONARY ARTERY
     Dosage: 5 MG, UNK
     Dates: start: 2000, end: 2007

REACTIONS (53)
  - Penis disorder [Unknown]
  - Hydrocele [Unknown]
  - Nephrolithiasis [Unknown]
  - Insomnia [Unknown]
  - Testicular pain [Unknown]
  - Musculoskeletal disorder [Unknown]
  - Penis injury [Unknown]
  - Anxiety [Not Recovered/Not Resolved]
  - Blood glucose increased [Unknown]
  - Peripheral swelling [Unknown]
  - Pain [Unknown]
  - Epididymitis [Unknown]
  - Muscle spasms [Unknown]
  - Back pain [Unknown]
  - Depression [Not Recovered/Not Resolved]
  - Blood calcium decreased [Unknown]
  - Blood chloride increased [Unknown]
  - Foot operation [Unknown]
  - Tooth disorder [Unknown]
  - Sexual dysfunction [Not Recovered/Not Resolved]
  - Hot flush [Unknown]
  - Transurethral prostatectomy [Unknown]
  - Brain injury [Unknown]
  - Impaired fasting glucose [Unknown]
  - Tinnitus [Unknown]
  - Secondary hypogonadism [Not Recovered/Not Resolved]
  - Hormone level abnormal [Unknown]
  - Organic erectile dysfunction [Not Recovered/Not Resolved]
  - Sleep apnoea syndrome [Unknown]
  - Testicular failure [Unknown]
  - Epididymal cyst [Unknown]
  - Muscular weakness [Unknown]
  - Hypertension [Unknown]
  - Prostatic dysplasia [Unknown]
  - Spermatocele [Unknown]
  - Headache [Unknown]
  - Musculoskeletal stiffness [Unknown]
  - Hypercholesterolaemia [Unknown]
  - Chronic obstructive pulmonary disease [Not Recovered/Not Resolved]
  - Renal cyst [Unknown]
  - Foot fracture [Unknown]
  - Gynaecomastia [Not Recovered/Not Resolved]
  - Skin reaction [Unknown]
  - Weight increased [Unknown]
  - Testicular disorder [Not Recovered/Not Resolved]
  - Urinary tract infection [Unknown]
  - Blood testosterone decreased [Unknown]
  - Urinary tract obstruction [Unknown]
  - Testicular torsion [Unknown]
  - Arthritis [Not Recovered/Not Resolved]
  - Haematuria [Unknown]
  - Drug ineffective [Unknown]
  - Weight increased [Recovering/Resolving]

NARRATIVE: CASE EVENT DATE: 2006
